FAERS Safety Report 6119560-8 (Version None)
Quarter: 2009Q1

REPORT INFORMATION
  Report Type: 
  Country: None (occurrence: None)
  Receive Date: 20090316
  Receipt Date: 20090304
  Transmission Date: 20090719
  Serious: Yes (Other)
  Sender: FDA-Public Use
  Company Number: B0563134A

PATIENT
  Age: 2 Day
  Sex: Female

DRUGS (1)
  1. RETROVIR [Suspect]
     Indication: ANTIVIRAL PROPHYLAXIS
     Dosage: 5ML SINGLE DOSE
     Route: 048
     Dates: start: 20090212, end: 20090212

REACTIONS (4)
  - ACCIDENTAL OVERDOSE [None]
  - MEDICATION ERROR [None]
  - TRANSAMINASES INCREASED [None]
  - WRONG TECHNIQUE IN DRUG USAGE PROCESS [None]
